FAERS Safety Report 9109144 (Version 3)
Quarter: 2013Q2

REPORT INFORMATION
  Report Type: Report from Study
  Country: US (occurrence: US)
  Receive Date: 20130222
  Receipt Date: 20130422
  Transmission Date: 20140414
  Serious: Yes (Life-Threatening, Hospitalization)
  Sender: FDA-Public Use
  Company Number: US-PFIZER INC-2013058028

PATIENT
  Sex: Male

DRUGS (6)
  1. AXITINIB [Suspect]
     Indication: RENAL CELL CARCINOMA
     Dosage: 5 MG, 2X/DAY
     Route: 048
     Dates: start: 20120809, end: 20120822
  2. AXITINIB [Suspect]
     Dosage: 7 MG, 2X/DAY
     Route: 048
     Dates: start: 20120822, end: 20120827
  3. AXITINIB [Suspect]
     Dosage: 5 MG, 2X/DAY
     Route: 048
     Dates: start: 20120827, end: 20120830
  4. AXITINIB [Suspect]
     Dosage: 5 MG, 2X/DAY
     Route: 048
     Dates: start: 20120903, end: 20120924
  5. HYDROCHLOROTHIAZIDE/LISINOPRIL [Suspect]
     Indication: HYPERTENSION
     Dosage: 25-20 MG, 1X/DAY
     Route: 048
     Dates: start: 2008
  6. MORPHINE SULFATE [Suspect]
     Dosage: UNK
     Dates: start: 20121015

REACTIONS (8)
  - Renal failure acute [Recovered/Resolved]
  - Ileus [Unknown]
  - Dehydration [None]
  - Hypophagia [None]
  - Mucosal inflammation [None]
  - Fatigue [None]
  - Hypotension [None]
  - Postoperative ileus [None]
